FAERS Safety Report 25524651 (Version 6)
Quarter: 2025Q4

REPORT INFORMATION
  Report Type: Spontaneous
  Country: US (occurrence: US)
  Receive Date: 20250707
  Receipt Date: 20251125
  Transmission Date: 20260118
  Serious: No
  Sender: BIOVITRUM
  Company Number: US-BIOVITRUM-2025-US-009183

PATIENT
  Age: 64 Year
  Sex: Female

DRUGS (2)
  1. VONJO [Suspect]
     Active Substance: PACRITINIB
     Indication: Myelofibrosis
     Dosage: DAILY
     Route: 048
     Dates: start: 20250618
  2. VONJO [Suspect]
     Active Substance: PACRITINIB
     Dates: start: 20250618

REACTIONS (6)
  - Diarrhoea [Unknown]
  - Off label use [Recovered/Resolved]
  - White blood cell count decreased [Not Recovered/Not Resolved]
  - Red blood cell count decreased [Not Recovered/Not Resolved]
  - Platelet count decreased [Not Recovered/Not Resolved]
  - Product use complaint [Unknown]

NARRATIVE: CASE EVENT DATE: 20250618
